FAERS Safety Report 24297871 (Version 11)
Quarter: 2025Q1

REPORT INFORMATION
  Report Type: Spontaneous
  Country: US (occurrence: US)
  Receive Date: 20240909
  Receipt Date: 20250103
  Transmission Date: 20250408
  Serious: No
  Sender: PFIZER
  Company Number: US-PFIZER INC-202400246537

PATIENT
  Age: 22 Year
  Sex: Male
  Weight: 56.7 kg

DRUGS (5)
  1. GENOTROPIN [Suspect]
     Active Substance: SOMATROPIN
     Indication: Pectus carinatum
     Dosage: 0.8 MG, DAILY (ADMINISTERED AT NIGHT)
  2. GENOTROPIN [Suspect]
     Active Substance: SOMATROPIN
     Indication: Growth disorder
     Dosage: 0.6 MG, ALTERNATE DAY (ALTERNATING WITH 0.8 MG)
  3. GENOTROPIN [Suspect]
     Active Substance: SOMATROPIN
     Indication: Hypopituitarism
     Dosage: 0.8 MG, ALTERNATE DAY (ALTERNATING WITH 0.6 MG)
  4. GENOTROPIN [Suspect]
     Active Substance: SOMATROPIN
     Indication: Hypothyroidism
  5. LEVOTHYROXINE [Concomitant]
     Active Substance: LEVOTHYROXINE
     Indication: Adrenal disorder
     Dosage: 88 MG, DAILY

REACTIONS (5)
  - Illness [Unknown]
  - Device defective [Unknown]
  - Device occlusion [Unknown]
  - Device use issue [Unknown]
  - Drug dose omission by device [Unknown]
